FAERS Safety Report 14576838 (Version 1)
Quarter: 2018Q1

REPORT INFORMATION
  Report Type: Spontaneous
  Country: US (occurrence: US)
  Receive Date: 20180225
  Receipt Date: 20180225
  Transmission Date: 20180509
  Serious: Yes (Other)
  Sender: FDA-Public Use
  Company Number: None

PATIENT
  Age: 77 Year
  Sex: Female
  Weight: 65.25 kg

DRUGS (20)
  1. MOXIFLOXACIN 0.5% OPHTHALMIC SOLUTION USP [Suspect]
     Active Substance: MOXIFLOXACIN HYDROCHLORIDE
     Indication: CONJUNCTIVITIS BACTERIAL
     Dosage: ?          QUANTITY:1 DROP(S);?
     Route: 047
     Dates: start: 20180221, end: 20180223
  2. PANTOPRAZOLE [Concomitant]
     Active Substance: PANTOPRAZOLE
  3. ESZOPLICONE [Concomitant]
  4. TEMAZEPAM. [Concomitant]
     Active Substance: TEMAZEPAM
  5. PRESERVISION AREDS-2 [Concomitant]
  6. VENTOLIN RESCUE INHALER [Concomitant]
  7. MONTELUKAST [Concomitant]
     Active Substance: MONTELUKAST SODIUM
  8. ATORVASTATIN [Concomitant]
     Active Substance: ATORVASTATIN
  9. FENOFIBRATE. [Concomitant]
     Active Substance: FENOFIBRATE
  10. ALLEGRA-D [Concomitant]
     Active Substance: FEXOFENADINE\PSEUDOEPHEDRINE
  11. VID D [Concomitant]
  12. CALCIUM HYDROXYAPATITE [Concomitant]
  13. NASALCROM [Concomitant]
     Active Substance: CROMOLYN SODIUM
  14. VITAMIN B COMPLEX [Concomitant]
     Active Substance: CYANOCOBALAMIN\DEXPANTHENOL\NIACINAMIDE\PYRIDOXINE HYDROCHLORIDE\RIBOFLAVIN 5^-PHOSPHATE SODIUM\THIAMINE HYDROCHLORIDE\VITAMIN B COMPLEX
  15. LAMOTRIGINE. [Concomitant]
     Active Substance: LAMOTRIGINE
  16. OXYCODONE/APAP [Concomitant]
     Active Substance: ACETAMINOPHEN\OXYCODONE HYDROCHLORIDE
  17. VITAMIN B12 [Concomitant]
     Active Substance: CYANOCOBALAMIN
  18. UBIQUINOL [Concomitant]
     Active Substance: UBIQUINOL
  19. LUCENTIS INJECTION R EYE [Concomitant]
  20. SUCRALFATE. [Concomitant]
     Active Substance: SUCRALFATE

REACTIONS (9)
  - Blister [None]
  - Eye swelling [None]
  - Rash [None]
  - Erythema [None]
  - Hypersensitivity [None]
  - Eyelid oedema [None]
  - Eye irritation [None]
  - Eyelid pain [None]
  - Dry skin [None]

NARRATIVE: CASE EVENT DATE: 20180221
